FAERS Safety Report 5577639-3 (Version None)
Quarter: 2007Q4

REPORT INFORMATION
  Report Type: 
  Country: None (occurrence: None)
  Receive Date: 20071231
  Receipt Date: 20071227
  Transmission Date: 20080405
  Serious: Yes (Other)
  Sender: FDA-Public Use
  Company Number: US-BAYER-200717194NA

PATIENT
  Sex: Female

DRUGS (4)
  1. MAGNEVIST [Suspect]
     Indication: NUCLEAR MAGNETIC RESONANCE IMAGING
     Route: 042
     Dates: start: 20040229, end: 20040229
  2. MAGNEVIST [Suspect]
     Route: 042
     Dates: start: 20040516, end: 20040516
  3. MAGNEVIST [Suspect]
     Route: 042
     Dates: start: 20040913, end: 20040913
  4. MAGNEVIST [Suspect]
     Route: 042
     Dates: start: 20050818, end: 20050818

REACTIONS (14)
  - DRUG INEFFECTIVE [None]
  - GAIT DISTURBANCE [None]
  - JOINT STIFFNESS [None]
  - JOINT SWELLING [None]
  - MOBILITY DECREASED [None]
  - MUSCLE SWELLING [None]
  - MUSCLE TIGHTNESS [None]
  - MUSCULOSKELETAL STIFFNESS [None]
  - NEPHROGENIC SYSTEMIC FIBROSIS [None]
  - PAIN IN EXTREMITY [None]
  - SCAR [None]
  - SKIN DISORDER [None]
  - SKIN SWELLING [None]
  - SKIN TIGHTNESS [None]
